FAERS Safety Report 4947342-9 (Version None)
Quarter: 2006Q1

REPORT INFORMATION
  Report Type: 
  Country: None (occurrence: None)
  Receive Date: 20060317
  Receipt Date: 20050930
  Transmission Date: 20060701
  Serious: Yes (Hospitalization)
  Sender: FDA-Public Use
  Company Number: US-MERCK-0510USA02026

PATIENT
  Age: 76 Year
  Sex: Female
  Weight: 82 kg

DRUGS (17)
  1. VIOXX [Suspect]
     Indication: OSTEOARTHRITIS
     Route: 048
     Dates: start: 19991220, end: 20040901
  2. VIOXX [Suspect]
     Route: 048
     Dates: start: 19991220, end: 20040901
  3. VIOXX [Suspect]
     Indication: PAIN
     Route: 048
     Dates: start: 19991220, end: 20040901
  4. VIOXX [Suspect]
     Route: 048
     Dates: start: 19991220, end: 20040901
  5. GEMFIBROZIL [Concomitant]
     Indication: BLOOD CHOLESTEROL
     Route: 065
  6. ZIAC [Concomitant]
     Route: 065
  7. VERAPAMIL [Concomitant]
     Indication: HYPERTENSION
     Route: 065
  8. TEMAZEPAM [Concomitant]
     Indication: INSOMNIA
     Route: 065
  9. LEVOXYL [Concomitant]
     Indication: HYPERTHYROIDISM
     Route: 065
     Dates: start: 19980101
  10. [THERAPY UNSPECIFIED] [Concomitant]
     Indication: MUSCLE SPASMS
     Route: 065
  11. PREMARIN [Concomitant]
     Indication: HYSTERECTOMY
     Route: 065
     Dates: start: 19690101
  12. SYNTHROID [Concomitant]
     Indication: HYPERTHYROIDISM
     Route: 065
     Dates: start: 19980101
  13. TYLENOL (CAPLET) [Concomitant]
     Indication: PAIN
     Route: 065
  14. LASIX [Concomitant]
     Route: 065
  15. ASPIRIN [Concomitant]
     Route: 065
     Dates: start: 20040101
  16. ZOCOR [Concomitant]
     Indication: BLOOD CHOLESTEROL
     Route: 048
     Dates: start: 20040101
  17. NORVASC [Concomitant]
     Route: 065
     Dates: start: 20040101

REACTIONS (6)
  - ANGINA PECTORIS [None]
  - CARDIAC DISORDER [None]
  - DYSPNOEA [None]
  - HYPERTENSION [None]
  - MYOCARDIAL INFARCTION [None]
  - OEDEMA PERIPHERAL [None]
